FAERS Safety Report 15683723 (Version 1)
Quarter: 2018Q4

REPORT INFORMATION
  Report Type: Report from Study
  Country: NL (occurrence: NL)
  Receive Date: 20181204
  Receipt Date: 20181204
  Transmission Date: 20190205
  Serious: Yes (Other)
  Sender: FDA-Public Use
  Company Number: NL-TOLMAR, INC.-2018NL012001

PATIENT

DRUGS (1)
  1. ELIGARD [Suspect]
     Active Substance: LEUPROLIDE ACETATE
     Indication: PRODUCT USED FOR UNKNOWN INDICATION
     Dosage: 45 MG, EVERY 6 MONTHS
     Route: 058
     Dates: start: 20181121

REACTIONS (7)
  - Urinary incontinence [Not Recovered/Not Resolved]
  - Pain in extremity [Unknown]
  - Anal incontinence [Not Recovered/Not Resolved]
  - Metastases to bone [Unknown]
  - Neoplasm malignant [Unknown]
  - Back pain [Unknown]
  - Metastases to bladder [Unknown]
